FAERS Safety Report 18884910 (Version 1)
Quarter: 2021Q1

REPORT INFORMATION
  Report Type: Spontaneous
  Country: US (occurrence: US)
  Receive Date: 20210212
  Receipt Date: 20210212
  Transmission Date: 20210420
  Serious: Yes (Other)
  Sender: FDA-Public Use
  Company Number: US-SA-2021SA044885

PATIENT
  Age: 51 Year
  Sex: Female

DRUGS (8)
  1. FAMOTIDINE. [Concomitant]
     Active Substance: FAMOTIDINE
  2. MODAFINIL. [Concomitant]
     Active Substance: MODAFINIL
  3. AUBAGIO [Suspect]
     Active Substance: TERIFLUNOMIDE
     Indication: MULTIPLE SCLEROSIS
     Route: 048
  4. CELECOXIB. [Concomitant]
     Active Substance: CELECOXIB
  5. AMOXICILLIN. [Concomitant]
     Active Substance: AMOXICILLIN
  6. TRAMADOL. [Concomitant]
     Active Substance: TRAMADOL
  7. VALDECOXIB [Concomitant]
     Active Substance: VALDECOXIB
  8. ASPIRIN LYSINE [Concomitant]
     Active Substance: ASPIRIN LYSINE

REACTIONS (2)
  - Depressed mood [Unknown]
  - White blood cell count decreased [Unknown]

NARRATIVE: CASE EVENT DATE: 202101
